FAERS Safety Report 7096797-5 (Version None)
Quarter: 2010Q4

REPORT INFORMATION
  Report Type: 
  Country: None (occurrence: None)
  Receive Date: 20101111
  Receipt Date: 20101101
  Transmission Date: 20110411
  Serious: Yes (Hospitalization)
  Sender: FDA-Public Use
  Company Number: US-MYLANLABS-2010S1018332

PATIENT
  Age: 55 Year
  Sex: Female
  Weight: 118.84 kg

DRUGS (7)
  1. HYDROCHLOROTHIAZIDE [Suspect]
     Indication: HYPERTENSION
     Route: 048
     Dates: start: 20090513, end: 20090602
  2. HYDROCHLOROTHIAZIDE [Suspect]
     Route: 048
     Dates: start: 20090603, end: 20090723
  3. LISINOPRIL [Suspect]
     Indication: HYPERTENSION
     Route: 048
     Dates: start: 20090514, end: 20090723
  4. PAXIL [Concomitant]
     Dates: start: 20090101
  5. ABILIFY [Concomitant]
     Dates: start: 20090101
  6. CARDIZEM [Concomitant]
  7. VITAMIN TAB [Concomitant]

REACTIONS (4)
  - ANXIETY [None]
  - DEPRESSION [None]
  - SUICIDAL IDEATION [None]
  - WEIGHT INCREASED [None]
